FAERS Safety Report 5133896-9 (Version None)
Quarter: 2006Q4

REPORT INFORMATION
  Report Type: 
  Country: None (occurrence: None)
  Receive Date: 20061019
  Receipt Date: 20060810
  Transmission Date: 20070319
  Serious: Yes (Hospitalization)
  Sender: FDA-Public Use
  Company Number: 14959

PATIENT
  Age: 70 Year
  Sex: Male

DRUGS (4)
  1. CARBOPLATIN [Suspect]
     Indication: MESOTHELIOMA
     Dosage: 400 MG PER_CYCLE IV
     Route: 042
  2. ZOFRAN [Suspect]
  3. SOLU-MEDROL [Suspect]
  4. GEMCITABINE [Concomitant]

REACTIONS (3)
  - HYPERSENSITIVITY [None]
  - HYPERTENSION [None]
  - SENSATION OF FOREIGN BODY [None]
